FAERS Safety Report 21580571 (Version 1)
Quarter: 2022Q4

REPORT INFORMATION
  Report Type: Report from Study
  Country: US (occurrence: US)
  Receive Date: 20221111
  Receipt Date: 20221111
  Transmission Date: 20230113
  Serious: Yes (Death, Other)
  Sender: FDA-Public Use
  Company Number: US-ACADIA PHARMACEUTICALS INC.-ACA-2022-PIM-003618

PATIENT
  Age: 91 Year
  Sex: Female

DRUGS (15)
  1. NUPLAZID [Suspect]
     Active Substance: PIMAVANSERIN TARTRATE
     Indication: Parkinson^s disease
     Dosage: 34 MILLIGRAM, QD
     Route: 048
     Dates: start: 202106, end: 20221019
  2. NUPLAZID [Suspect]
     Active Substance: PIMAVANSERIN TARTRATE
     Indication: Hallucination
  3. CALCIUM [Concomitant]
     Active Substance: CALCIUM
  4. HELIOCARE [Concomitant]
  5. APAP [Concomitant]
     Active Substance: ACETAMINOPHEN
  6. LORATADINE [Concomitant]
     Active Substance: LORATADINE
  7. VITAMIN B12 [Concomitant]
     Active Substance: CYANOCOBALAMIN
  8. VITAMIN D3 [Concomitant]
     Active Substance: CHOLECALCIFEROL
  9. MORPHINE [Concomitant]
     Active Substance: MORPHINE
  10. HALOPERIDOL [Concomitant]
     Active Substance: HALOPERIDOL
  11. ALPRAZOLAM [Concomitant]
     Active Substance: ALPRAZOLAM
  12. SCOPOLAMINE [Concomitant]
     Active Substance: SCOPOLAMINE
  13. SERTRALINE [Concomitant]
     Active Substance: SERTRALINE HYDROCHLORIDE
  14. CARBIDOPA\LEVODOPA [Concomitant]
     Active Substance: CARBIDOPA\LEVODOPA
  15. ANASTROZOLE [Concomitant]
     Active Substance: ANASTROZOLE

REACTIONS (1)
  - Death [Recovered/Resolved]

NARRATIVE: CASE EVENT DATE: 20221019
